FAERS Safety Report 9277389 (Version 1)
Quarter: 2013Q2

REPORT INFORMATION
  Report Type: Spontaneous
  Country: US (occurrence: None)
  Receive Date: 20130506
  Receipt Date: 20130506
  Transmission Date: 20140414
  Serious: Yes (Death)
  Sender: FDA-Public Use
  Company Number: None

PATIENT
  Age: 9 Year
  Sex: Male

DRUGS (1)
  1. MONTELUKAST [Suspect]
     Dosage: 1  QD  PO
     Route: 048
     Dates: start: 20061118, end: 20130502

REACTIONS (2)
  - Gun shot wound [None]
  - Intentional self-injury [None]
